FAERS Safety Report 7511454-6 (Version None)
Quarter: 2011Q2

REPORT INFORMATION
  Report Type: 
  Country: None (occurrence: None)
  Receive Date: 20110531
  Receipt Date: 20110525
  Transmission Date: 20111010
  Serious: Yes (Other)
  Sender: FDA-Public Use
  Company Number: US-AMGEN-USASP2011024584

PATIENT
  Sex: Female
  Weight: 58.503 kg

DRUGS (3)
  1. CORTICOSTEROIDS [Concomitant]
  2. RITUXIMAB [Concomitant]
  3. NPLATE [Suspect]
     Indication: IDIOPATHIC THROMBOCYTOPENIC PURPURA
     Dosage: 116 A?G, QWK
     Dates: start: 20101020, end: 20110324

REACTIONS (1)
  - SYSTEMIC LUPUS ERYTHEMATOSUS [None]
